FAERS Safety Report 7203437-0 (Version None)
Quarter: 2010Q4

REPORT INFORMATION
  Report Type: 
  Country: None (occurrence: None)
  Receive Date: 20101230
  Receipt Date: 20101221
  Transmission Date: 20110411
  Serious: Yes (Other)
  Sender: FDA-Public Use
  Company Number: US-PFIZER INC-2010118310

PATIENT
  Sex: Female
  Weight: 74 kg

DRUGS (10)
  1. CHANTIX [Suspect]
     Indication: SMOKING CESSATION THERAPY
     Dosage: 0.5 MG, 1X/DAY
     Route: 048
     Dates: start: 20100101, end: 20100101
  2. CHANTIX [Suspect]
     Indication: TOBACCO ABUSE
     Dosage: 1 MG, 2X/DAY
     Route: 048
     Dates: start: 20100101, end: 20100920
  3. PRILOSEC [Concomitant]
     Indication: GASTROOESOPHAGEAL REFLUX DISEASE
     Dosage: 20 MG, 1X/DAY
     Route: 048
  4. CALCITONIN, SALMON [Concomitant]
     Indication: OSTEOPENIA
     Dosage: 200 IU, 1X/DAY
     Route: 045
  5. ACETAMINOPHEN AND HYDROCODONE BITARTRATE [Concomitant]
     Indication: PAIN
     Dosage: 500 MG, 1X/DAY
     Route: 048
  6. XANAX [Concomitant]
     Indication: INSOMNIA
     Dosage: 1/2 TO 1 TABLED TWICE DAILY AS NEEDED
     Route: 048
  7. ACETYLSALICYLIC ACID [Concomitant]
     Dosage: 81 MG, 1X/DAY
  8. CYCLOBENZAPRINE [Concomitant]
     Dosage: 10 MG, 1X/DAY AS NEEDED
     Route: 048
  9. DIFLUNISAL [Concomitant]
     Dosage: 500 MG, 2X/DAY
     Route: 048
     Dates: start: 20100518
  10. XALATAN [Concomitant]
     Dosage: UNK
     Route: 047

REACTIONS (7)
  - FEELING ABNORMAL [None]
  - FEELING HOT [None]
  - FLUSHING [None]
  - HYPERSENSITIVITY [None]
  - HYPERTENSION [None]
  - PALPITATIONS [None]
  - SWELLING FACE [None]
